FAERS Safety Report 5898049-5 (Version None)
Quarter: 2008Q3

REPORT INFORMATION
  Report Type: 
  Country: None (occurrence: None)
  Receive Date: 20080905
  Receipt Date: 20080108
  Transmission Date: 20090109
  Serious: Yes (Hospitalization, Other)
  Sender: FDA-Public Use
  Company Number: WAES 0801USA01495

PATIENT
  Age: 42 Year
  Sex: Female

DRUGS (1)
  1. TAB MAXALT [Suspect]
     Dosage: PO
     Route: 048

REACTIONS (1)
  - CEREBROVASCULAR ACCIDENT [None]
